FAERS Safety Report 19254380 (Version 1)
Quarter: 2021Q2

REPORT INFORMATION
  Report Type: Spontaneous
  Country: CA (occurrence: CA)
  Receive Date: 20210513
  Receipt Date: 20210513
  Transmission Date: 20210717
  Serious: Yes (Other)
  Sender: FDA-Public Use
  Company Number: CA-SAMSUNG BIOEPIS-SB-2020-33992

PATIENT
  Age: 32 Year
  Sex: Female
  Weight: 98 kg

DRUGS (3)
  1. DIPHENHYDRAMINE. [Concomitant]
     Active Substance: DIPHENHYDRAMINE
     Indication: PREMEDICATION
     Route: 048
  2. INFLIXIMAB [Suspect]
     Active Substance: INFLIXIMAB
     Indication: CROHN^S DISEASE
     Route: 042
  3. ACETAMINOPHEN. [Concomitant]
     Active Substance: ACETAMINOPHEN
     Indication: PREMEDICATION
     Route: 048

REACTIONS (13)
  - Scab [Unknown]
  - Incorrect dosage administered [Unknown]
  - Product use issue [Unknown]
  - Pruritus [Unknown]
  - Rash [Unknown]
  - Feeling abnormal [Unknown]
  - Migraine [Unknown]
  - Skin disorder [Unknown]
  - Off label use [Unknown]
  - Erythema [Unknown]
  - Lupus-like syndrome [Unknown]
  - Feeling hot [Unknown]
  - Drug ineffective [Unknown]
